FAERS Safety Report 9051857 (Version 2)
Quarter: 2013Q1

REPORT INFORMATION
  Report Type: Spontaneous
  Country: IL (occurrence: IL)
  Receive Date: 20130207
  Receipt Date: 20130305
  Transmission Date: 20140127
  Serious: Yes (Death, Hospitalization)
  Sender: FDA-Public Use
  Company Number: IL-AMGEN-ISRSP2013004181

PATIENT
  Age: 24 Year
  Sex: Male

DRUGS (2)
  1. NEUPOGEN [Suspect]
     Indication: PROPHYLAXIS
     Dosage: 300 MUG, UNK 18 HOURS AFTER CHEMOTHERAPY
     Route: 065
     Dates: start: 20130117
  2. ADRIAMYCIN                         /00330902/ [Concomitant]
     Dosage: UNK

REACTIONS (2)
  - Disease progression [Fatal]
  - Intentional drug misuse [Unknown]
